FAERS Safety Report 25112528 (Version 1)
Quarter: 2025Q1

REPORT INFORMATION
  Report Type: Spontaneous
  Country: IT (occurrence: IT)
  Receive Date: 20250324
  Receipt Date: 20250324
  Transmission Date: 20250409
  Serious: Yes (Hospitalization)
  Sender: MYLAN
  Company Number: IT-MYLANLABS-2025M1024455

PATIENT
  Age: 18 Hour
  Sex: Female

DRUGS (3)
  1. NITROGLYCERIN [Suspect]
     Active Substance: NITROGLYCERIN
     Indication: Ischaemia
  2. NITROGLYCERIN [Suspect]
     Active Substance: NITROGLYCERIN
  3. NITROGLYCERIN [Suspect]
     Active Substance: NITROGLYCERIN

REACTIONS (2)
  - Methaemoglobinaemia [Recovered/Resolved]
  - Off label use [Unknown]
